FAERS Safety Report 5170613-0 (Version None)
Quarter: 2006Q4

REPORT INFORMATION
  Report Type: 
  Country: None (occurrence: None)
  Receive Date: 20061212
  Receipt Date: 20061201
  Transmission Date: 20070319
  Serious: Yes (Other)
  Sender: FDA-Public Use
  Company Number: US-MERCK-0612USA00503

PATIENT
  Age: 61 Year
  Sex: Female

DRUGS (2)
  1. VYTORIN [Suspect]
     Indication: BLOOD CHOLESTEROL ABNORMAL
     Route: 048
     Dates: start: 20060101, end: 20060101
  2. LYRICA [Concomitant]
     Route: 065

REACTIONS (3)
  - ARTHRALGIA [None]
  - BACK DISORDER [None]
  - MYALGIA [None]
